FAERS Safety Report 7745767-X (Version None)
Quarter: 2011Q3

REPORT INFORMATION
  Report Type: 
  Country: None (occurrence: None)
  Receive Date: 20110907
  Receipt Date: 20110823
  Transmission Date: 20111222
  Serious: Yes (Hospitalization)
  Sender: FDA-Public Use
  Company Number: TCI2011A04288

PATIENT
  Age: 72 Year
  Sex: Male

DRUGS (7)
  1. EVIPROSTAT SG (SODIUM TAUROCHOLATE, MANGANESE CHLORIDE, TRITICUM AESTI [Concomitant]
  2. METFORMIN HYDROCHLORIDE [Concomitant]
  3. PALNAC (TAMSULOSIN HYDROCHLORIDE) [Concomitant]
  4. GLYBURIDE [Concomitant]
  5. GLUCOBAY [Concomitant]
  6. ACTOS [Suspect]
     Indication: DIABETES MELLITUS
     Dosage: 15 MG (15 MG, 1 IN 1 D), PER ORAL
     Route: 048
     Dates: start: 20060802, end: 20110606
  7. GASPORT (FAMOTIDINE) [Concomitant]

REACTIONS (1)
  - TRANSITIONAL CELL CARCINOMA [None]
